FAERS Safety Report 6745978-6 (Version None)
Quarter: 2010Q2

REPORT INFORMATION
  Report Type: 
  Country: None (occurrence: None)
  Receive Date: 20100528
  Receipt Date: 20100519
  Transmission Date: 20101027
  Serious: Yes (Hospitalization)
  Sender: FDA-Public Use
  Company Number: US-SANOFI-AVENTIS-2010SA023169

PATIENT
  Age: 72 Year
  Sex: Male
  Weight: 78.5 kg

DRUGS (19)
  1. MULTAQ [Suspect]
     Indication: ATRIAL FIBRILLATION
     Route: 048
     Dates: start: 20100301, end: 20100414
  2. K-DUR [Concomitant]
  3. ALL OTHER THERAPEUTIC PRODUCTS [Concomitant]
  4. COZAAR [Concomitant]
  5. PRAVACHOL [Concomitant]
  6. HUMALOG [Concomitant]
  7. LASIX [Concomitant]
  8. VASOTEC [Concomitant]
  9. FLOMAX [Concomitant]
  10. NEXIUM [Concomitant]
  11. LOVENOX [Concomitant]
  12. ASPIRIN [Concomitant]
  13. RHINOCORT [Concomitant]
  14. CIPRO [Concomitant]
  15. TESSALON [Concomitant]
  16. ZETIA [Concomitant]
  17. ASTELIN [Concomitant]
  18. SYNTHROID [Concomitant]
  19. LORTAB [Concomitant]

REACTIONS (3)
  - ACUTE RESPIRATORY DISTRESS SYNDROME [None]
  - PLEURAL EFFUSION [None]
  - PNEUMONITIS [None]
